FAERS Safety Report 11321400 (Version 1)
Quarter: 2015Q3

REPORT INFORMATION
  Report Type: Spontaneous
  Country: US (occurrence: US)
  Receive Date: 20150729
  Receipt Date: 20150729
  Transmission Date: 20151125
  Serious: Yes (Hospitalization, Disabling)
  Sender: FDA-Public Use
  Company Number: US-ENDO PHARMACEUTICALS INC.-201503182

PATIENT
  Age: 50 Year
  Sex: Male
  Weight: 129.39 kg

DRUGS (4)
  1. DEPO-TESTOSTERONE [Suspect]
     Active Substance: TESTOSTERONE CYPIONATE
     Indication: ANDROGEN REPLACEMENT THERAPY
     Route: 030
     Dates: start: 20111216, end: 20120223
  2. DEPO-TESTOSTERONE [Suspect]
     Active Substance: TESTOSTERONE CYPIONATE
     Indication: ERECTILE DYSFUNCTION
     Dosage: DAILY
     Dates: start: 201105, end: 201402
  3. TESTOPEL [Suspect]
     Active Substance: TESTOSTERONE
     Dosage: DAILY
     Dates: start: 201105, end: 201402
  4. TESTOPEL [Suspect]
     Active Substance: TESTOSTERONE
     Indication: ANDROGEN REPLACEMENT THERAPY
     Dosage: 10 PELLETS
     Route: 058
     Dates: start: 20121019

REACTIONS (4)
  - Deep vein thrombosis [Not Recovered/Not Resolved]
  - Prescribed overdose [Unknown]
  - Anxiety [Not Recovered/Not Resolved]
  - Pain [Not Recovered/Not Resolved]

NARRATIVE: CASE EVENT DATE: 20121019
